FAERS Safety Report 16531698 (Version 1)
Quarter: 2019Q3

REPORT INFORMATION
  Report Type: Spontaneous
  Country: TR (occurrence: TR)
  Receive Date: 20190705
  Receipt Date: 20190705
  Transmission Date: 20191004
  Serious: Yes (Hospitalization)
  Sender: FDA-Public Use
  Company Number: TR-HQ SPECIALTY-TR-2019INT000162

PATIENT
  Age: 15 Year
  Sex: Male

DRUGS (2)
  1. LEVETIRACETAM. [Suspect]
     Active Substance: LEVETIRACETAM
     Indication: GENERALISED TONIC-CLONIC SEIZURE
     Dosage: 20 MG/KG/D BY A WEEKLY DOSE TITRATION
  2. LEVETIRACETAM. [Suspect]
     Active Substance: LEVETIRACETAM
     Dosage: 40 MG/KG/D BY A WEEKLY DOSE TITRATIONUNK

REACTIONS (1)
  - Mania [Recovered/Resolved]
